FAERS Safety Report 8984317 (Version 2)
Quarter: 2013Q1

REPORT INFORMATION
  Report Type: Report from Study
  Country: AU (occurrence: AU)
  Receive Date: 20121226
  Receipt Date: 20130227
  Transmission Date: 20140127
  Serious: Yes (Hospitalization)
  Sender: FDA-Public Use
  Company Number: AU-009507513-1212AUS007956

PATIENT
  Age: 78 Year
  Sex: Male
  Weight: 81.6 kg

DRUGS (6)
  1. TEMOZOLOMIDE [Suspect]
     Indication: BRAIN NEOPLASM MALIGNANT
     Dosage: 5 DAYS AM (280MG, 1 IN 1 D)
     Route: 048
     Dates: start: 20100505
  2. BEVACIZUMAB [Suspect]
     Indication: BRAIN NEOPLASM MALIGNANT
     Dosage: UNK UNK, Q3W
     Route: 041
     Dates: start: 20100505
  3. DEXAMETHASONE [Concomitant]
     Dosage: DAILY DOSE: 4MG
     Dates: start: 20111103
  4. PANADOL OSTEO [Concomitant]
     Dosage: DAILY DOSE: 3990 UNIT NOT REPORTED
     Dates: start: 201203
  5. BACTRIM [Concomitant]
     Dosage: DAILY DOSE: 1600/320
     Dates: start: 20120723
  6. PANTOPRAZOLE [Concomitant]
     Dosage: DAILY DOSE: 40MG
     Dates: start: 20120817

REACTIONS (1)
  - Localised infection [Recovered/Resolved with Sequelae]
